FAERS Safety Report 22103391 (Version 1)
Quarter: 2023Q1

REPORT INFORMATION
  Report Type: Spontaneous
  Country: CN (occurrence: None)
  Receive Date: 20230316
  Receipt Date: 20230316
  Transmission Date: 20230418
  Serious: Yes (Other)
  Sender: FDA-Public Use
  Company Number: CN-ROCHE-3305046

PATIENT
  Age: 47 Year
  Sex: Female
  Weight: 50 kg

DRUGS (4)
  1. TECENTRIQ [Suspect]
     Active Substance: ATEZOLIZUMAB
     Indication: Hepatocellular carcinoma
     Route: 041
     Dates: start: 20220802, end: 20221110
  2. AVASTIN [Suspect]
     Active Substance: BEVACIZUMAB
     Indication: Hepatocellular carcinoma
     Route: 065
     Dates: start: 20220802
  3. TISLELIZUMAB [Suspect]
     Active Substance: TISLELIZUMAB
     Indication: Hepatocellular carcinoma
     Route: 041
     Dates: start: 20221209, end: 20221209
  4. CELLCEPT [Suspect]
     Active Substance: MYCOPHENOLATE MOFETIL
     Indication: Liver injury
     Route: 048
     Dates: start: 202301

REACTIONS (3)
  - Liver injury [Recovering/Resolving]
  - Epistaxis [Unknown]
  - Off label use [Unknown]

NARRATIVE: CASE EVENT DATE: 20220812
